FAERS Safety Report 9929506 (Version 2)
Quarter: 2014Q1

REPORT INFORMATION
  Report Type: Spontaneous
  Country: JP (occurrence: JP)
  Receive Date: 20140227
  Receipt Date: 20140313
  Transmission Date: 20141002
  Serious: Yes (Hospitalization)
  Sender: FDA-Public Use
  Company Number: JP-GLAXOSMITHKLINE-B0971472A

PATIENT
  Age: 65 Year
  Sex: Male

DRUGS (6)
  1. SERETIDE (50MCG/250MCG) [Suspect]
     Indication: ASTHMA
     Dosage: 250MCG PER DAY
     Route: 055
     Dates: start: 20140217, end: 20140217
  2. TOMIRON [Suspect]
     Indication: NASOPHARYNGITIS
     Route: 048
     Dates: start: 20140213, end: 20140219
  3. CHINESE MEDICINE [Suspect]
     Indication: NASOPHARYNGITIS
     Route: 048
     Dates: start: 20140213, end: 20140219
  4. ROXATIDINE ACETATE HYDROCHLORIDE [Suspect]
     Indication: NASOPHARYNGITIS
     Route: 065
     Dates: start: 20140213, end: 20140219
  5. GASLON N_OD [Suspect]
     Indication: NASOPHARYNGITIS
     Route: 048
     Dates: start: 20140213, end: 20140219
  6. BRUFEN [Suspect]
     Indication: PRODUCT USED FOR UNKNOWN INDICATION
     Route: 048
     Dates: end: 20140219

REACTIONS (4)
  - Liver disorder [Recovering/Resolving]
  - Liver function test abnormal [Unknown]
  - Myalgia [Recovering/Resolving]
  - Hypoaesthesia [Recovering/Resolving]
